FAERS Safety Report 4677395-7 (Version None)
Quarter: 2005Q2

REPORT INFORMATION
  Report Type: 
  Country: None (occurrence: None)
  Receive Date: 20050527
  Receipt Date: 20050527
  Transmission Date: 20051028
  Serious: No
  Sender: FDA-Public Use
  Company Number: None

PATIENT

DRUGS (4)
  1. STERILE WATER FOR INJECTION [Suspect]
     Dosage: INJECTABLE
  2. STERILE WATER [Suspect]
     Dosage: INJECTABLE
  3. 0.9% NACL FOR IRRIGATION [Suspect]
     Dosage: INJECTABLE
  4. 0.9% NACL FOR INJECTION [Suspect]
     Dosage: INJECTABLE

REACTIONS (2)
  - DRUG DISPENSING ERROR [None]
  - MEDICATION ERROR [None]
